FAERS Safety Report 16627266 (Version 1)
Quarter: 2019Q3

REPORT INFORMATION
  Report Type: Spontaneous
  Country: US (occurrence: US)
  Receive Date: 20190724
  Receipt Date: 20190724
  Transmission Date: 20191004
  Serious: Yes (Other)
  Sender: FDA-Public Use
  Company Number: PHHY2019US168752

PATIENT
  Age: 42 Year
  Sex: Male

DRUGS (4)
  1. METOPROLOL. [Concomitant]
     Active Substance: METOPROLOL
     Indication: PRODUCT USED FOR UNKNOWN INDICATION
     Dosage: UNK
     Route: 065
  2. METHOTREXATE. [Suspect]
     Active Substance: METHOTREXATE
     Indication: SARCOIDOSIS
     Dosage: 15 MG, QW
     Route: 065
  3. PREDNISONE. [Concomitant]
     Active Substance: PREDNISONE
     Dosage: 40 MG, QD (FOR 5 DAYS FOLLOWED BY SLOW TAPER)
     Route: 065
  4. PREDNISONE. [Concomitant]
     Active Substance: PREDNISONE
     Indication: SARCOIDOSIS
     Dosage: 100 MG, QD
     Route: 065

REACTIONS (3)
  - Product use in unapproved indication [Unknown]
  - Hepatotoxicity [Unknown]
  - Hepatic enzyme increased [Unknown]
